FAERS Safety Report 8840908 (Version 1)
Quarter: 2012Q4

REPORT INFORMATION
  Report Type: 
  Country: US (occurrence: US)
  Receive Date: 20121015
  Receipt Date: 20121015
  Transmission Date: 20130627
  Serious: Yes (Hospitalization)
  Sender: FDA-Public Use
  Company Number: US-ROCHE-1113505

PATIENT
  Sex: Female

DRUGS (7)
  1. NUTROPIN [Suspect]
     Indication: HYPOTHALAMO-PITUITARY DISORDER
     Route: 058
     Dates: start: 199811
  2. NUTROPIN [Suspect]
     Indication: GROWTH HORMONE DEFICIENCY
  3. DELTASONE [Concomitant]
  4. SYNTHROID [Concomitant]
  5. PROVERA [Concomitant]
  6. ESTRACE [Concomitant]
  7. INSULIN [Concomitant]
     Dosage: 55 NPH
     Route: 065

REACTIONS (1)
  - Cystitis [Unknown]
